FAERS Safety Report 4636656-8 (Version None)
Quarter: 2005Q2

REPORT INFORMATION
  Report Type: 
  Country: None (occurrence: None)
  Receive Date: 20050328
  Receipt Date: 20041207
  Transmission Date: 20051028
  Serious: No
  Sender: FDA-Public Use
  Company Number: USA041285494

PATIENT
  Age: 55 Year
  Sex: Female
  Weight: 75 kg

DRUGS (8)
  1. STRATTERA [Suspect]
     Indication: FATIGUE
     Dosage: 40 MG DAY
     Dates: start: 20041130
  2. PROZAC [Suspect]
     Indication: PAIN
     Dosage: 20 MG/2 DAY
     Dates: start: 19940101, end: 20040101
  3. SYNTHROID [Concomitant]
  4. LIPITOR [Concomitant]
  5. INDERAL [Concomitant]
  6. KLONOPIN [Concomitant]
  7. NEURONTIN (GABAPENTIN PFIZER) [Concomitant]
  8. DARVOCET-N 100 [Concomitant]

REACTIONS (4)
  - ANGER [None]
  - ENERGY INCREASED [None]
  - EXCITABILITY [None]
  - FATIGUE [None]
